FAERS Safety Report 5215331-5 (Version None)
Quarter: 2007Q1

REPORT INFORMATION
  Report Type: 
  Country: None (occurrence: None)
  Receive Date: 20070116
  Receipt Date: 20070105
  Transmission Date: 20070707
  Serious: Yes (Death, Other)
  Sender: FDA-Public Use
  Company Number: 2006-03281

PATIENT
  Age: 70 Year
  Sex: Male

DRUGS (3)
  1. VELCADE [Suspect]
     Indication: MULTIPLE MYELOMA
     Dosage: 1.30 MG/M2, INTRAVENOUS
     Route: 042
     Dates: start: 20061215, end: 20061226
  2. CEFTAZIDIME [Concomitant]
  3. NEUPOGEN [Concomitant]

REACTIONS (12)
  - ASTHENIA [None]
  - BLOOD CALCIUM DECREASED [None]
  - GASTROINTESTINAL HAEMORRHAGE [None]
  - HAEMORRHAGIC DIATHESIS [None]
  - HYPOTENSION [None]
  - MOUTH HAEMORRHAGE [None]
  - MULTIPLE MYELOMA [None]
  - PANCYTOPENIA [None]
  - PURPURA [None]
  - PYREXIA [None]
  - RENAL HAEMORRHAGE [None]
  - SOMNOLENCE [None]
